FAERS Safety Report 7755979-7 (Version None)
Quarter: 2011Q3

REPORT INFORMATION
  Report Type: 
  Country: None (occurrence: None)
  Receive Date: 20110916
  Receipt Date: 20100622
  Transmission Date: 20111222
  Serious: No
  Sender: FDA-Public Use
  Company Number: US-BAYER-201027266NA

PATIENT
  Age: 32 Year
  Sex: Female

DRUGS (2)
  1. MIRENA [Suspect]
     Indication: CONTRACEPTION
     Dosage: 20 ?G/D, UNK
     Route: 015
     Dates: start: 20100326
  2. MIRENA [Suspect]
     Indication: MENORRHAGIA

REACTIONS (5)
  - SKIN BURNING SENSATION [None]
  - PRURITUS [None]
  - LACERATION [None]
  - ABDOMINAL PAIN LOWER [None]
  - VAGINAL HAEMORRHAGE [None]
